FAERS Safety Report 11230478 (Version 1)
Quarter: 2015Q2

REPORT INFORMATION
  Report Type: Spontaneous
  Country: US (occurrence: None)
  Receive Date: 20150630
  Receipt Date: 20150630
  Transmission Date: 20150821
  Serious: Yes (Hospitalization)
  Sender: FDA-Public Use
  Company Number: None

PATIENT
  Age: 81 Year
  Sex: Female
  Weight: 95.71 kg

DRUGS (2)
  1. VITAMIN D [Concomitant]
     Active Substance: CHOLECALCIFEROL
  2. INVANZ [Suspect]
     Active Substance: ERTAPENEM SODIUM

REACTIONS (7)
  - Condition aggravated [None]
  - Anxiety [None]
  - Hallucination [None]
  - Urinary tract infection [None]
  - Nonspecific reaction [None]
  - Dyspnoea [None]
  - Hypophagia [None]

NARRATIVE: CASE EVENT DATE: 20150625
